FAERS Safety Report 9617781 (Version 1)
Quarter: 2013Q4

REPORT INFORMATION
  Report Type: Spontaneous
  Country: DE (occurrence: DE)
  Receive Date: 20131011
  Receipt Date: 20131011
  Transmission Date: 20140711
  Serious: Yes (Other)
  Sender: FDA-Public Use
  Company Number: PHHY2013DE114405

PATIENT
  Sex: Male

DRUGS (3)
  1. CERTICAN [Suspect]
     Dosage: UNK UKN, UNK
     Dates: start: 20130514, end: 20130822
  2. CALCINEURIN INHIBITORS [Concomitant]
     Dosage: UNK UKN, UNK
     Dates: start: 20130822
  3. MYCOPHENOLIC ACID [Concomitant]
     Dosage: UNK UKN, UNK
     Dates: start: 20130822

REACTIONS (3)
  - Nephropathy toxic [Recovered/Resolved]
  - Renal failure acute [Recovered/Resolved]
  - Renal impairment [Recovered/Resolved]
